FAERS Safety Report 23401522 (Version 2)
Quarter: 2024Q1

REPORT INFORMATION
  Report Type: Spontaneous
  Country: US (occurrence: US)
  Receive Date: 20240115
  Receipt Date: 20240118
  Transmission Date: 20240410
  Serious: No
  Sender: FDA-Public Use
  Company Number: US-PFIZER INC-202400004623

PATIENT
  Age: 17 Year
  Sex: Female

DRUGS (2)
  1. RITLECITINIB [Suspect]
     Active Substance: RITLECITINIB
     Indication: Alopecia totalis
     Dosage: 50 MG, DAILY
     Route: 048
  2. RITLECITINIB [Suspect]
     Active Substance: RITLECITINIB
     Indication: Alopecia areata

REACTIONS (1)
  - Folliculitis [Unknown]
